FAERS Safety Report 10055269 (Version 2)
Quarter: 2014Q2

REPORT INFORMATION
  Report Type: Report from Study
  Country: IT (occurrence: IT)
  Receive Date: 20140403
  Receipt Date: 20140403
  Transmission Date: 20141212
  Serious: Yes (Hospitalization)
  Sender: FDA-Public Use
  Company Number: IT-ROCHE-1219849

PATIENT
  Age: 32 Year
  Sex: Female
  Weight: 58 kg

DRUGS (5)
  1. VEMURAFENIB [Suspect]
     Indication: METASTATIC MALIGNANT MELANOMA
     Route: 048
     Dates: start: 20130221, end: 20130303
  2. VEMURAFENIB [Suspect]
     Route: 048
     Dates: start: 20130311, end: 20130619
  3. VEMURAFENIB [Suspect]
     Route: 048
     Dates: start: 20130620
  4. VEMURAFENIB [Suspect]
     Route: 048
     Dates: start: 20130221, end: 20130811
  5. DELTACORTENE [Concomitant]

REACTIONS (6)
  - Convulsion [Not Recovered/Not Resolved]
  - Pyrexia [Recovered/Resolved]
  - Rash [Recovered/Resolved]
  - Vulvovaginal pruritus [Recovered/Resolved]
  - Arthralgia [Recovered/Resolved]
  - Constipation [Recovering/Resolving]
